FAERS Safety Report 4383063-1 (Version None)
Quarter: 2004Q2

REPORT INFORMATION
  Report Type: 
  Country: None (occurrence: None)
  Receive Date: 20040610
  Receipt Date: 20040504
  Transmission Date: 20050107
  Serious: No
  Sender: FDA-Public Use
  Company Number: US-JNJFOC-20040403206

PATIENT
  Age: 48 Year
  Sex: Female

DRUGS (1)
  1. NATRECOR [Suspect]
     Indication: ACCIDENTAL EXPOSURE
     Dates: start: 20030101

REACTIONS (1)
  - CORNEAL LESION [None]
